FAERS Safety Report 6035475-8 (Version None)
Quarter: 2009Q1

REPORT INFORMATION
  Report Type: 
  Country: None (occurrence: None)
  Receive Date: 20090112
  Receipt Date: 20090112
  Transmission Date: 20090719
  Serious: Yes (Hospitalization)
  Sender: FDA-Public Use
  Company Number: None

PATIENT
  Age: 62 Year
  Sex: Male
  Weight: 77.5 kg

DRUGS (1)
  1. GEMCITABINE [Suspect]
     Indication: PANCREATIC CARCINOMA
     Dosage: 200MG WEEKLY IV DRIP
     Route: 041
     Dates: start: 20081009, end: 20081231

REACTIONS (5)
  - HAEMOLYTIC URAEMIC SYNDROME [None]
  - HEADACHE [None]
  - HYPERTENSION [None]
  - MICROANGIOPATHIC HAEMOLYTIC ANAEMIA [None]
  - RENAL FAILURE [None]
